FAERS Safety Report 9454172 (Version 3)
Quarter: 2013Q4

REPORT INFORMATION
  Report Type: Spontaneous
  Country: US (occurrence: None)
  Receive Date: 20130807
  Receipt Date: 20131227
  Transmission Date: 20140711
  Serious: Yes (Congenital Anomaly)
  Sender: FDA-Public Use
  Company Number: SYM-2013-07591

PATIENT
  Age: 0 Day
  Sex: Male

DRUGS (1)
  1. WELLBUTRIN XL [Suspect]
     Indication: PRODUCT USED FOR UNKNOWN INDICATION
     Route: 064
     Dates: start: 20080428, end: 20080806

REACTIONS (15)
  - Transposition of the great vessels [None]
  - Ventricular septal defect [None]
  - Pulmonary valve stenosis congenital [None]
  - Patent ductus arteriosus [None]
  - Atrial septal defect [None]
  - Maternal drugs affecting foetus [None]
  - Aortic valve incompetence [None]
  - Ventricular septal defect [None]
  - Foetal exposure during pregnancy [None]
  - Caesarean section [None]
  - Grunting [None]
  - Pulmonary congestion [None]
  - Neonatal tachypnoea [None]
  - Hypoxia [None]
  - Cardiac failure congestive [None]
